FAERS Safety Report 22950535 (Version 5)
Quarter: 2023Q4

REPORT INFORMATION
  Report Type: Report from Study
  Country: US (occurrence: US)
  Receive Date: 20230915
  Receipt Date: 20231215
  Transmission Date: 20240109
  Serious: Yes (Other)
  Sender: FDA-Public Use
  Company Number: US-002147023-NVSC2023US199692

PATIENT
  Sex: Male

DRUGS (3)
  1. ENTRESTO [Suspect]
     Active Substance: SACUBITRIL\VALSARTAN
     Indication: Product used for unknown indication
     Dosage: 1 DOSAGE FORM, QD
     Route: 048
     Dates: start: 202303
  2. ENTRESTO [Suspect]
     Active Substance: SACUBITRIL\VALSARTAN
     Dosage: 24 MG, QD
     Route: 065
  3. ENTRESTO [Suspect]
     Active Substance: SACUBITRIL\VALSARTAN
     Dosage: 0.5 DOSAGE FORM, QN (1/2 TAB ONCE A NIGHT)
     Route: 065

REACTIONS (14)
  - Cardiac dysfunction [Unknown]
  - Cardiac arrest [Unknown]
  - Blood pressure decreased [Unknown]
  - Weight decreased [Unknown]
  - Rhinorrhoea [Unknown]
  - Hypertension [Unknown]
  - Headache [Unknown]
  - Sinusitis [Unknown]
  - Somnolence [Unknown]
  - Epistaxis [Unknown]
  - Dizziness [Unknown]
  - Inappropriate schedule of product administration [Unknown]
  - Underdose [Unknown]
  - Wrong technique in product usage process [Not Recovered/Not Resolved]
